FAERS Safety Report 6296050-3 (Version None)
Quarter: 2009Q3

REPORT INFORMATION
  Report Type: 
  Country: None (occurrence: None)
  Receive Date: 20090804
  Receipt Date: 20090731
  Transmission Date: 20100115
  Serious: Yes (Hospitalization)
  Sender: FDA-Public Use
  Company Number: JP-BRISTOL-MYERS SQUIBB COMPANY-14610687

PATIENT
  Age: 70 Year
  Sex: Male

DRUGS (2)
  1. AVAPRO [Suspect]
     Indication: ESSENTIAL HYPERTENSION
     Dosage: DOSE REDUCED ON 02MAY09 TO 100 MG/DAY
     Route: 048
     Dates: start: 20081213
  2. FLUITRAN [Concomitant]
     Dosage: DISCONTINUED
     Dates: start: 20090306, end: 20090501

REACTIONS (3)
  - HYPOGLYCAEMIA [None]
  - HYPONATRAEMIA [None]
  - NASOPHARYNGITIS [None]
